FAERS Safety Report 4956247-9 (Version None)
Quarter: 2006Q1

REPORT INFORMATION
  Report Type: 
  Country: None (occurrence: None)
  Receive Date: 20060323
  Receipt Date: 20060314
  Transmission Date: 20060701
  Serious: Yes (Hospitalization)
  Sender: FDA-Public Use
  Company Number: 2005-12-0626

PATIENT
  Age: 75 Year
  Sex: Male

DRUGS (12)
  1. INTEGRILIN [Suspect]
     Indication: ACUTE CORONARY SYNDROME
     Dosage: 6.8MG-12ML/H INTRAVENOU (SEE IMAGE)
     Route: 042
     Dates: start: 20051128, end: 20051128
  2. INTEGRILIN [Suspect]
     Indication: ACUTE CORONARY SYNDROME
     Dosage: 6.8MG-12ML/H INTRAVENOU (SEE IMAGE)
     Route: 042
     Dates: start: 20051128, end: 20051128
  3. INTEGRILIN [Suspect]
     Indication: ACUTE CORONARY SYNDROME
     Dosage: 6.8MG-12ML/H INTRAVENOU (SEE IMAGE)
     Route: 042
     Dates: start: 20051128
  4. HEPARIN SODIUM [Suspect]
     Dates: start: 20051123, end: 20051126
  5. LOVENOX [Concomitant]
  6. PLAVIX [Concomitant]
  7. KARDEGIC SACHETS (ACETYLSALICYLATE LYSINE) [Concomitant]
  8. NITRODERM [Concomitant]
  9. SOTALOL HCL [Concomitant]
  10. AMLOR [Concomitant]
  11. FINASTERIDE [Concomitant]
  12. ATORVASTATIN CALCIUM [Concomitant]

REACTIONS (5)
  - DERMATITIS BULLOUS [None]
  - HAEMOPTYSIS [None]
  - PETECHIAE [None]
  - PYREXIA [None]
  - THROMBOCYTOPENIA [None]
